FAERS Safety Report 4608921-1 (Version None)
Quarter: 2005Q1

REPORT INFORMATION
  Report Type: 
  Country: None (occurrence: None)
  Receive Date: 20050309
  Receipt Date: 20050224
  Transmission Date: 20050727
  Serious: Yes (Death, Hospitalization)
  Sender: FDA-Public Use
  Company Number: 2005027970

PATIENT
  Age: 33 Year
  Sex: Female

DRUGS (5)
  1. DEPO-PROVERA [Suspect]
     Indication: MENSTRUAL DISCOMFORT
     Dates: start: 20040927, end: 20040927
  2. ZOPLICONE (ZOPICLONE0 [Concomitant]
  3. CARBAMAZEPINE [Concomitant]
  4. RISPERIDONE [Concomitant]
  5. BUSPIRON (HYOSCINE BUTYLBROMIDE, METAMIZOLE SODIUM MONOHYDRATE0 [Concomitant]

REACTIONS (9)
  - CARDIAC ARREST [None]
  - CARDIOMEGALY [None]
  - DILATATION ATRIAL [None]
  - ESCHERICHIA INFECTION [None]
  - HEPATOMEGALY [None]
  - NAUSEA [None]
  - PULMONARY EMBOLISM [None]
  - PULMONARY OEDEMA [None]
  - VOMITING [None]
